FAERS Safety Report 5952275-5 (Version None)
Quarter: 2008Q4

REPORT INFORMATION
  Report Type: 
  Country: None (occurrence: None)
  Receive Date: 20081113
  Receipt Date: 20081030
  Transmission Date: 20090506
  Serious: Yes (Death, Other)
  Sender: FDA-Public Use
  Company Number: PHHO2007MX11381

PATIENT
  Sex: Male

DRUGS (1)
  1. STALEVO 100 [Suspect]
     Indication: PARKINSON'S DISEASE
     Dosage: 2 TABLETS (100/25/200MG)
     Route: 048
     Dates: start: 20050501

REACTIONS (4)
  - ABASIA [None]
  - APHASIA [None]
  - ARTERIAL DISORDER [None]
  - DEATH [None]
